FAERS Safety Report 8546144 (Version 3)
Quarter: 2012Q4

REPORT INFORMATION
  Report Type: Spontaneous
  Country: JP (occurrence: None)
  Receive Date: 20120426
  Receipt Date: 20120911
  Transmission Date: 20130627
  Serious: Yes (Death, Other)
  Sender: FDA-Public Use
  Company Number: JP-2012-14983

PATIENT
  Age: 81 Year
  Sex: Female
  Weight: 77 kg

DRUGS (6)
  1. SAMSCA [Suspect]
     Indication: FLUID RETENTION
     Dosage: 7.5 MG MILLIGRAM(S), QAM, ORAL
     Route: 048
     Dates: start: 20120115, end: 20120119
  2. PREMINENT (HYDROCHLOROTHIAZIDE, LOSARTAN POTASSIUM) [Concomitant]
  3. DIART (AZOSEMIDE ) [Concomitant]
  4. ALDACTONE [Concomitant]
  5. LEVOFLOXACIN [Concomitant]
  6. ZOLPIDEM TARTRATE [Concomitant]

REACTIONS (4)
  - Hepatic cirrhosis [None]
  - Blood urea increased [None]
  - Gastrointestinal haemorrhage [None]
  - Condition aggravated [None]
